FAERS Safety Report 18226991 (Version 1)
Quarter: 2020Q3

REPORT INFORMATION
  Report Type: Spontaneous
  Country: CN (occurrence: CN)
  Receive Date: 20200903
  Receipt Date: 20200903
  Transmission Date: 20201103
  Serious: Yes (Other)
  Sender: FDA-Public Use
  Company Number: CN-PFIZER INC-2020339463

PATIENT
  Age: 76 Year
  Sex: Male
  Weight: 70 kg

DRUGS (2)
  1. DIFLUCAN [Suspect]
     Active Substance: FLUCONAZOLE
     Dosage: 0.2 G, 1X/DAY
     Route: 041
     Dates: start: 20200802, end: 20200803
  2. DIFLUCAN [Suspect]
     Active Substance: FLUCONAZOLE
     Indication: PNEUMONIA
     Dosage: 0.4 G, 1X/DAY
     Route: 041
     Dates: start: 20200801, end: 20200801

REACTIONS (6)
  - Coagulation time prolonged [Recovering/Resolving]
  - Hepatic function abnormal [Recovering/Resolving]
  - Blood bilirubin increased [Unknown]
  - Off label use [Unknown]
  - Product use in unapproved indication [Unknown]
  - Bilirubin conjugated increased [Unknown]

NARRATIVE: CASE EVENT DATE: 20200802
